FAERS Safety Report 9440056 (Version 2)
Quarter: 2013Q3

REPORT INFORMATION
  Report Type: Spontaneous
  Country: US (occurrence: US)
  Receive Date: 20130805
  Receipt Date: 20130910
  Transmission Date: 20140515
  Serious: Yes (Hospitalization, Other)
  Sender: FDA-Public Use
  Company Number: US-ASTELLAS-2013US008040

PATIENT
  Sex: Female
  Weight: 79 kg

DRUGS (19)
  1. PROGRAF [Suspect]
     Indication: LIVER TRANSPLANT
     Dosage: 1 MG, BID
     Route: 048
     Dates: start: 20050425
  2. LACTULOSE [Concomitant]
     Indication: PRODUCT USED FOR UNKNOWN INDICATION
     Dosage: 30 ML, TID
     Route: 048
  3. FUROSEMIDE [Concomitant]
     Indication: PRODUCT USED FOR UNKNOWN INDICATION
     Dosage: 10 MG, QOD
     Route: 048
  4. XIFAXAN [Concomitant]
     Indication: PRODUCT USED FOR UNKNOWN INDICATION
     Dosage: 400 MG, TID
     Route: 048
  5. GABAPENTIN [Concomitant]
     Indication: PRODUCT USED FOR UNKNOWN INDICATION
     Dosage: 1 DF, UID/QD
     Route: 048
  6. ESOMEPRAZOLE MAGNESIUM [Concomitant]
     Indication: PRODUCT USED FOR UNKNOWN INDICATION
     Dosage: 1 DF, UID/QD
     Route: 048
  7. OXYCODONE [Concomitant]
     Indication: HEADACHE
     Dosage: 1 DF, PRN
     Route: 048
  8. OXYCODONE [Concomitant]
     Indication: BACK PAIN
  9. FENTANYL [Concomitant]
     Indication: PRODUCT USED FOR UNKNOWN INDICATION
     Dosage: APPLIED TO SKIN EVERY 72 HOURS
  10. JANUVIA [Concomitant]
     Indication: PRODUCT USED FOR UNKNOWN INDICATION
     Dosage: 1 DF, UID/QD
     Route: 048
  11. NOVOLOG [Concomitant]
     Indication: PRODUCT USED FOR UNKNOWN INDICATION
     Dosage: UNK
     Route: 065
  12. LANTUS [Concomitant]
     Indication: PRODUCT USED FOR UNKNOWN INDICATION
     Dosage: 15 U, AT BEDTIME
     Route: 058
  13. MAGNESIUM OXIDE [Concomitant]
     Indication: PRODUCT USED FOR UNKNOWN INDICATION
     Dosage: 1 DF, BID
     Route: 048
  14. RENVELA [Concomitant]
     Indication: PRODUCT USED FOR UNKNOWN INDICATION
     Dosage: 1 DF, TID, BEFORE MEALS
     Route: 048
  15. RENA-VITE [Concomitant]
     Indication: PRODUCT USED FOR UNKNOWN INDICATION
     Dosage: 1 DF, UID/QD
     Route: 048
  16. PROCHLORPERAZ MALEATE [Concomitant]
     Indication: NAUSEA
     Dosage: 1 DF, Q8 HOURS, AS NEEDED
     Route: 048
  17. ADVAIR [Concomitant]
     Indication: PRODUCT USED FOR UNKNOWN INDICATION
     Dosage: UNK
     Route: 065
  18. PHOSLO [Concomitant]
     Indication: PRODUCT USED FOR UNKNOWN INDICATION
     Dosage: 2 DF, WITH MEALS
     Route: 048
  19. ROPINIROLE [Concomitant]
     Indication: PRODUCT USED FOR UNKNOWN INDICATION
     Dosage: 2 DF, UID/QD, AT EVENING AT BEDTIME
     Route: 048

REACTIONS (36)
  - Renal failure [Recovering/Resolving]
  - Nephropathy toxic [Unknown]
  - Hepatic cirrhosis [Unknown]
  - Hepatic infarction [Unknown]
  - Hepatic encephalopathy [Unknown]
  - Rectal haemorrhage [Unknown]
  - Diverticulum [Unknown]
  - Upper respiratory tract infection [Unknown]
  - Urinary tract infection [Unknown]
  - Hepatitis C [Unknown]
  - Diabetes mellitus [Unknown]
  - Vomiting [Unknown]
  - Nausea [Unknown]
  - Dehydration [Unknown]
  - Abdominal pain [Unknown]
  - Lymphoproliferative disorder [Unknown]
  - Blood bilirubin increased [Recovering/Resolving]
  - Chronic hepatic failure [Unknown]
  - Iron deficiency anaemia [Unknown]
  - Lymphadenopathy [Unknown]
  - Dental caries [Unknown]
  - Hepatic fibrosis [Unknown]
  - Balance disorder [Unknown]
  - Treatment noncompliance [Unknown]
  - Appetite disorder [Unknown]
  - Biliary dilatation [Unknown]
  - Joint crepitation [Unknown]
  - Neck pain [Unknown]
  - Pain in jaw [Unknown]
  - Asthenia [Unknown]
  - Headache [Unknown]
  - Oedema peripheral [Unknown]
  - Back pain [Unknown]
  - Arthralgia [Unknown]
  - Arthralgia [Unknown]
  - Gastrooesophageal reflux disease [Unknown]
